FAERS Safety Report 6525591-6 (Version None)
Quarter: 2009Q4

REPORT INFORMATION
  Report Type: 
  Country: None (occurrence: None)
  Receive Date: 20091228
  Receipt Date: 20091215
  Transmission Date: 20100525
  Serious: Yes (Other)
  Sender: FDA-Public Use
  Company Number: 003326

PATIENT
  Age: 63 Year
  Sex: Female

DRUGS (1)
  1. PREDNISOLONE [Suspect]
     Indication: SARCOIDOSIS
     Dosage: 30 MG QD ORAL
     Route: 048

REACTIONS (3)
  - B-CELL LYMPHOMA [None]
  - BONE DISORDER [None]
  - DRUG INEFFECTIVE [None]
